FAERS Safety Report 13646515 (Version 1)
Quarter: 2017Q2

REPORT INFORMATION
  Report Type: Spontaneous
  Country: US (occurrence: US)
  Receive Date: 20170612
  Receipt Date: 20170612
  Transmission Date: 20170830
  Serious: Yes (Other)
  Sender: FDA-Public Use
  Company Number: None

PATIENT
  Age: 40 Year
  Sex: Male
  Weight: 87 kg

DRUGS (1)
  1. REMICADE [Suspect]
     Active Substance: INFLIXIMAB
     Indication: SARCOIDOSIS
     Dosage: ?          OTHER FREQUENCY:EVERY 6 WEEKS;?
     Route: 041
     Dates: start: 20160921, end: 20170612

REACTIONS (5)
  - Chest discomfort [None]
  - Nausea [None]
  - Pallor [None]
  - Dyspnoea [None]
  - Flushing [None]

NARRATIVE: CASE EVENT DATE: 20170612
